FAERS Safety Report 8451745-8 (Version None)
Quarter: 2012Q2

REPORT INFORMATION
  Report Type: 
  Country: None (occurrence: None)
  Receive Date: 20120620
  Receipt Date: 20120315
  Transmission Date: 20120825
  Serious: No
  Sender: FDA-Public Use
  Company Number: US-VERTEX PHARMACEUTICALS INC.-AE-2012-003784

PATIENT
  Sex: Female

DRUGS (4)
  1. INCIVEK [Suspect]
     Indication: HEPATITIS C
     Route: 048
     Dates: start: 20120201
  2. HYDROCHLOROTHIAZIDE [Concomitant]
  3. PEGASYS [Concomitant]
     Indication: HEPATITIS C
     Dates: start: 20120201
  4. RIBASPHERE [Concomitant]
     Indication: HEPATITIS C
     Dates: start: 20120201

REACTIONS (2)
  - PRURITUS [None]
  - MUSCLE TWITCHING [None]
